FAERS Safety Report 7894112-8 (Version None)
Quarter: 2011Q4

REPORT INFORMATION
  Report Type: 
  Country: None (occurrence: None)
  Receive Date: 20111104
  Receipt Date: 20111102
  Transmission Date: 20120403
  Serious: Yes (Other)
  Sender: FDA-Public Use
  Company Number: PL-ROXANE LABORATORIES, INC.-2011-RO-01578RO

PATIENT
  Age: 53 Year
  Sex: Male

DRUGS (4)
  1. CYCLOSPORINE [Suspect]
     Indication: DERMATITIS ATOPIC
  2. METHOTREXATE [Suspect]
     Indication: DERMATITIS ATOPIC
  3. MYCOPHENOLATE MOFETIL [Suspect]
     Indication: DERMATITIS ATOPIC
  4. AZATHIOPRINE [Suspect]
     Indication: DERMATITIS ATOPIC

REACTIONS (1)
  - MYCOSIS FUNGOIDES [None]
